FAERS Safety Report 10235144 (Version 2)
Quarter: 2014Q2

REPORT INFORMATION
  Report Type: Spontaneous
  Country: IT (occurrence: IT)
  Receive Date: 20140613
  Receipt Date: 20140626
  Transmission Date: 20141212
  Serious: Yes (Other)
  Sender: FDA-Public Use
  Company Number: IT-TEVA-486768ISR

PATIENT
  Age: 63 Year
  Sex: Female
  Weight: 58 kg

DRUGS (2)
  1. RISPERIDONE TEVA 3 MG [Suspect]
     Indication: SCHIZOAFFECTIVE DISORDER BIPOLAR TYPE
     Dosage: 3 MILLIGRAM DAILY;
     Route: 048
     Dates: start: 20130801
  2. CLONAZEPAM [Concomitant]

REACTIONS (3)
  - Psychotic disorder [Recovered/Resolved with Sequelae]
  - Product substitution issue [Recovered/Resolved with Sequelae]
  - Drug ineffective [Recovered/Resolved]
